FAERS Safety Report 16935448 (Version 8)
Quarter: 2021Q2

REPORT INFORMATION
  Report Type: Spontaneous
  Country: US (occurrence: US)
  Receive Date: 20191018
  Receipt Date: 20210402
  Transmission Date: 20210716
  Serious: Yes (Death, Other)
  Sender: FDA-Public Use
  Company Number: US-SHIRE-US201935106

PATIENT
  Age: 52 Year
  Sex: Male
  Weight: 74 kg

DRUGS (20)
  1. DEXILANT [Concomitant]
     Active Substance: DEXLANSOPRAZOLE
  2. GAMMAGARD LIQUID [Suspect]
     Active Substance: HUMAN IMMUNOGLOBULIN G
     Indication: CONGENITAL HYPOGAMMAGLOBULINAEMIA
     Dosage: 10 GRAM, 2X A WEEK
     Route: 058
     Dates: start: 20140415
  3. BACTRIM [Concomitant]
     Active Substance: SULFAMETHOXAZOLE\TRIMETHOPRIM
  4. HYDROCODONE BITARTRATE AND ACETAMINOPHEN [Concomitant]
     Active Substance: ACETAMINOPHEN\HYDROCODONE BITARTRATE
  5. HYDROCODONE/ACETAMINOPHEN [Concomitant]
     Active Substance: ACETAMINOPHEN\HYDROCODONE
     Indication: PRODUCT USED FOR UNKNOWN INDICATION
  6. LMX4 [Concomitant]
     Active Substance: LIDOCAINE
  7. GAMMAGARD LIQUID [Suspect]
     Active Substance: HUMAN IMMUNOGLOBULIN G
     Indication: IMMUNODEFICIENCY COMMON VARIABLE
     Dosage: 10 GRAM
     Route: 058
     Dates: start: 20130517
  8. ACETAMINOPHEN. [Concomitant]
     Active Substance: ACETAMINOPHEN
  9. PROAIR HFA [Concomitant]
     Active Substance: ALBUTEROL SULFATE
  10. EPINEPHRINE. [Concomitant]
     Active Substance: EPINEPHRINE
  11. VITAMIN E NOS [Concomitant]
     Active Substance: .ALPHA.-TOCOPHEROL
  12. CENTRUM ACTIVE [Concomitant]
  13. ROBITESSIN [Concomitant]
  14. TAGAMET [Concomitant]
     Active Substance: CIMETIDINE
  15. CYMBALTA [Concomitant]
     Active Substance: DULOXETINE HYDROCHLORIDE
  16. PROAIR HFA [Concomitant]
     Active Substance: ALBUTEROL SULFATE
  17. EPIPEN [Concomitant]
     Active Substance: EPINEPHRINE
  18. DIPHENHYDRAMINE. [Concomitant]
     Active Substance: DIPHENHYDRAMINE
  19. BACLOFEN. [Concomitant]
     Active Substance: BACLOFEN
  20. TAGAMET DUAL ACTION [Concomitant]

REACTIONS (7)
  - Arthralgia [Unknown]
  - Unevaluable event [Fatal]
  - Chronic obstructive pulmonary disease [Fatal]
  - Lower respiratory tract infection [Unknown]
  - Sinusitis [Unknown]
  - Decreased appetite [Unknown]
  - Weight decreased [Unknown]

NARRATIVE: CASE EVENT DATE: 20191013
